FAERS Safety Report 16043078 (Version 1)
Quarter: 2019Q1

REPORT INFORMATION
  Report Type: Spontaneous
  Country: US (occurrence: US)
  Receive Date: 20190306
  Receipt Date: 20190306
  Transmission Date: 20190418
  Serious: Yes (Other)
  Sender: FDA-Public Use
  Company Number: US-BOIRON INC.-2019BOR00011

PATIENT
  Sex: Female

DRUGS (1)
  1. OSCILLOCOCCINUM [Suspect]
     Active Substance: CAIRINA MOSCHATA HEART/LIVER AUTOLYSATE
     Dosage: 2 DOSES
     Dates: start: 201902, end: 201902

REACTIONS (3)
  - Pneumonia [Not Recovered/Not Resolved]
  - Pruritus [Recovered/Resolved]
  - Bronchitis [Unknown]

NARRATIVE: CASE EVENT DATE: 201902
